FAERS Safety Report 8064423-4 (Version None)
Quarter: 2012Q1

REPORT INFORMATION
  Report Type: 
  Country: None (occurrence: None)
  Receive Date: 20120123
  Receipt Date: 20120113
  Transmission Date: 20120608
  Serious: Yes (Hospitalization)
  Sender: FDA-Public Use
  Company Number: CHPA2012US001306

PATIENT
  Age: 25 Year
  Sex: Female

DRUGS (1)
  1. EXCEDRIN TENSION HEADACHE CAPLETS [Suspect]
     Indication: TENSION HEADACHE
     Dosage: UNK DF, UNK
     Route: 048

REACTIONS (1)
  - HEADACHE [None]
